FAERS Safety Report 4981267-8 (Version None)
Quarter: 2006Q1

REPORT INFORMATION
  Report Type: 
  Country: None (occurrence: None)
  Receive Date: 20060312
  Receipt Date: 20060327
  Transmission Date: 20060701
  Serious: Yes (Hospitalization, Other)
  Sender: FDA-Public Use
  Company Number: 200511048BBE

PATIENT
  Age: 44 Year
  Sex: Female
  Weight: 75 kg

DRUGS (3)
  1. GAMUNEX [Suspect]
     Indication: IMMUNOSUPPRESSION
     Dosage: 75 G, TOTAL DAILY, INTRAVENOUS
     Route: 042
  2. GAMUNEX [Suspect]
     Indication: TRANSPLANT
     Dosage: 75 G, TOTAL DAILY, INTRAVENOUS
     Route: 042
  3. GAMUNEX [Suspect]

REACTIONS (2)
  - HAEMOLYTIC ANAEMIA [None]
  - IMMUNE SYSTEM DISORDER [None]
